FAERS Safety Report 5128473-X (Version None)
Quarter: 2006Q4

REPORT INFORMATION
  Report Type: 
  Country: None (occurrence: None)
  Receive Date: 20061017
  Receipt Date: 20060713
  Transmission Date: 20070319
  Serious: Yes (Hospitalization)
  Sender: FDA-Public Use
  Company Number: US-ROCHE-455317

PATIENT
  Age: 76 Year
  Sex: Female
  Weight: 45 kg

DRUGS (2)
  1. CAPECITABINE [Suspect]
     Indication: NEOPLASM MALIGNANT
     Route: 065
     Dates: start: 20060621
  2. LOVENOX [Concomitant]
     Dates: start: 20060301

REACTIONS (4)
  - ABDOMINAL PAIN [None]
  - DISEASE PROGRESSION [None]
  - PELVIC VENOUS THROMBOSIS [None]
  - SMALL INTESTINAL OBSTRUCTION [None]
